FAERS Safety Report 9986712 (Version 1)
Quarter: 2014Q1

REPORT INFORMATION
  Report Type: Report from Study
  Country: US (occurrence: US)
  Receive Date: 20140307
  Receipt Date: 20140307
  Transmission Date: 20141002
  Serious: No
  Sender: FDA-Public Use
  Company Number: US-ABBVIE-13P-163-1081343-00

PATIENT
  Sex: Male
  Weight: 113.5 kg

DRUGS (3)
  1. HUMIRA [Suspect]
     Indication: ANKYLOSING SPONDYLITIS
     Dates: start: 2007
  2. TRAMADOL [Concomitant]
     Indication: ANKYLOSING SPONDYLITIS
  3. PERCOCET [Concomitant]
     Indication: ANKYLOSING SPONDYLITIS

REACTIONS (3)
  - Back pain [Not Recovered/Not Resolved]
  - Arthralgia [Not Recovered/Not Resolved]
  - Arthralgia [Not Recovered/Not Resolved]
